FAERS Safety Report 7238599-2 (Version None)
Quarter: 2011Q1

REPORT INFORMATION
  Report Type: 
  Country: None (occurrence: None)
  Receive Date: 20110118
  Receipt Date: 20110104
  Transmission Date: 20110831
  Serious: Yes (Other)
  Sender: FDA-Public Use
  Company Number: 2010P1003257

PATIENT
  Age: 33 Year
  Sex: Female
  Weight: 52.1637 kg

DRUGS (6)
  1. PREVACID [Concomitant]
  2. METOPROLOL [Concomitant]
  3. METHYLPREDNISOLONE [Suspect]
     Indication: SINUSITIS
     Dosage: 4 MG; 6X/DAY; PO, 4 MG; 5X/DAY; PO, 4 MG; 4X/DAY; PO
     Route: 048
     Dates: start: 20101207, end: 20101207
  4. METHYLPREDNISOLONE [Suspect]
     Indication: SINUSITIS
     Dosage: 4 MG; 6X/DAY; PO, 4 MG; 5X/DAY; PO, 4 MG; 4X/DAY; PO
     Route: 048
     Dates: start: 20101208, end: 20101208
  5. METHYLPREDNISOLONE [Suspect]
     Indication: SINUSITIS
     Dosage: 4 MG; 6X/DAY; PO, 4 MG; 5X/DAY; PO, 4 MG; 4X/DAY; PO
     Route: 048
     Dates: start: 20101209, end: 20101209
  6. LIALDA [Concomitant]

REACTIONS (9)
  - LACRIMATION INCREASED [None]
  - MUSCULAR WEAKNESS [None]
  - FEELING ABNORMAL [None]
  - CONFUSIONAL STATE [None]
  - FEELING HOT [None]
  - ANXIETY [None]
  - VOMITING [None]
  - NAUSEA [None]
  - TACHYCARDIA [None]
